FAERS Safety Report 7395141-3 (Version None)
Quarter: 2011Q2

REPORT INFORMATION
  Report Type: 
  Country: None (occurrence: None)
  Receive Date: 20110405
  Receipt Date: 20110323
  Transmission Date: 20111010
  Serious: Yes (Hospitalization, Other)
  Sender: FDA-Public Use
  Company Number: PHHY2011US01572

PATIENT
  Sex: Female

DRUGS (7)
  1. VITAMIN D [Concomitant]
  2. CHEMOTHERAPEUTICS NOS [Concomitant]
  3. BISPHOSPHONATES [Concomitant]
  4. FEMARA [Suspect]
     Dosage: 2.5 MG, UNK
     Route: 048
     Dates: start: 20110103
  5. FEMARA [Suspect]
     Indication: BREAST CANCER
     Dosage: 2.5 MG, QD
     Route: 048
     Dates: start: 20060101
  6. CALCIUM [Concomitant]
  7. RECLAST [Concomitant]

REACTIONS (9)
  - FRACTURE [None]
  - HEAD INJURY [None]
  - PAIN [None]
  - FALL [None]
  - COLONIC POLYP [None]
  - COLON ADENOMA [None]
  - SPINAL COMPRESSION FRACTURE [None]
  - BACK PAIN [None]
  - BLOOD PRESSURE INCREASED [None]
